FAERS Safety Report 12302518 (Version 1)
Quarter: 2016Q2

REPORT INFORMATION
  Report Type: Spontaneous
  Country: US (occurrence: US)
  Receive Date: 20160425
  Receipt Date: 20160425
  Transmission Date: 20160815
  Serious: No
  Sender: FDA-Public Use
  Company Number: US-SA-2015SA065716

PATIENT
  Sex: Female

DRUGS (1)
  1. LOVENOX [Suspect]
     Active Substance: ENOXAPARIN SODIUM
     Route: 065

REACTIONS (5)
  - Malaise [Unknown]
  - Hypoacusis [Unknown]
  - Vomiting [Unknown]
  - Abdominal pain upper [Unknown]
  - Cough [Unknown]
